FAERS Safety Report 26117185 (Version 1)
Quarter: 2025Q4

REPORT INFORMATION
  Report Type: Spontaneous
  Country: EU (occurrence: EU)
  Receive Date: 20251203
  Receipt Date: 20251203
  Transmission Date: 20260117
  Serious: Yes (Other)
  Sender: PFIZER
  Company Number: EU-SANDOZ-SDZ2025SE085650

PATIENT
  Age: 55 Year
  Sex: Male

DRUGS (2)
  1. RITUXIMAB [Suspect]
     Active Substance: RITUXIMAB
     Indication: Multiple sclerosis
     Dosage: TOTAL ACCUMULATED DOSE OF RITUXIMAB: 5500 MG
  2. INTERFERON BETA [Concomitant]
     Active Substance: INTERFERON BETA
     Indication: Multiple sclerosis
     Dosage: UNK

REACTIONS (6)
  - Embolism venous [Unknown]
  - Infarction [Unknown]
  - Neoehrlichiosis [Recovering/Resolving]
  - Splenomegaly [Unknown]
  - Hepatomegaly [Unknown]
  - Off label use [Unknown]
